FAERS Safety Report 7317181-2 (Version None)
Quarter: 2011Q1

REPORT INFORMATION
  Report Type: 
  Country: None (occurrence: None)
  Receive Date: 20110226
  Receipt Date: 20101005
  Transmission Date: 20110831
  Serious: No
  Sender: FDA-Public Use
  Company Number: US-ALLERGAN-1012825US

PATIENT
  Age: 60 Year
  Sex: Female

DRUGS (1)
  1. BOTOX COSMETIC [Suspect]
     Indication: SKIN WRINKLING
     Dosage: 30 UNITS, SINGLE
     Route: 030
     Dates: start: 20100908, end: 20100908

REACTIONS (6)
  - EYELID PTOSIS [None]
  - PAIN [None]
  - CORNEAL REFLEX DECREASED [None]
  - DRY EYE [None]
  - HYPERAESTHESIA [None]
  - MALAISE [None]
